FAERS Safety Report 8354776-1 (Version None)
Quarter: 2012Q2

REPORT INFORMATION
  Report Type: 
  Country: None (occurrence: None)
  Receive Date: 20120511
  Receipt Date: 20120509
  Transmission Date: 20120825
  Serious: Yes (Other)
  Sender: FDA-Public Use
  Company Number: GXKR2012DE001685

PATIENT
  Age: 72 Year
  Sex: Female

DRUGS (1)
  1. VALSARTAN [Suspect]

REACTIONS (3)
  - VOMITING [None]
  - SYNCOPE [None]
  - DIARRHOEA [None]
